FAERS Safety Report 19654005 (Version 6)
Quarter: 2021Q3

REPORT INFORMATION
  Report Type: Report from Study
  Country: CA (occurrence: CA)
  Receive Date: 20210804
  Receipt Date: 20210825
  Transmission Date: 20211014
  Serious: Yes (Hospitalization, Other)
  Sender: FDA-Public Use
  Company Number: CA-BEH-2021133986

PATIENT
  Age: 63 Year
  Sex: Male
  Weight: 136.05 kg

DRUGS (8)
  1. HIZENTRA [Suspect]
     Active Substance: HUMAN IMMUNOGLOBULIN G
     Dosage: UNK
     Route: 065
  2. HIZENTRA [Suspect]
     Active Substance: HUMAN IMMUNOGLOBULIN G
     Dosage: UNK
     Route: 065
  3. HIZENTRA [Suspect]
     Active Substance: HUMAN IMMUNOGLOBULIN G
     Dosage: UNK
     Route: 065
     Dates: start: 20210324
  4. HIZENTRA [Suspect]
     Active Substance: HUMAN IMMUNOGLOBULIN G
     Dosage: UNK
     Route: 065
     Dates: start: 20210324
  5. SPIRONOLACTONE. [Concomitant]
     Active Substance: SPIRONOLACTONE
  6. HIZENTRA [Suspect]
     Active Substance: HUMAN IMMUNOGLOBULIN G
     Indication: CHRONIC INFLAMMATORY DEMYELINATING POLYRADICULONEUROPATHY
     Dosage: 48 GRAM, QW
     Route: 065
     Dates: start: 20210324
  7. HIZENTRA [Suspect]
     Active Substance: HUMAN IMMUNOGLOBULIN G
     Dosage: UNK, TOT
     Route: 065
     Dates: start: 20210716, end: 20210716
  8. FUROSEMIDE. [Concomitant]
     Active Substance: FUROSEMIDE

REACTIONS (30)
  - Heart rate decreased [Unknown]
  - Pain [Unknown]
  - Asthenia [Unknown]
  - Hyperhidrosis [Unknown]
  - Hypertension [Unknown]
  - Ocular hyperaemia [Unknown]
  - Hypotension [Unknown]
  - Hypotension [Unknown]
  - Injection site pain [Unknown]
  - Drug withdrawal syndrome [Unknown]
  - Restlessness [Unknown]
  - Cardiac failure congestive [Unknown]
  - Dizziness [Unknown]
  - Infusion site pain [Unknown]
  - Renal failure [Unknown]
  - Pain [Not Recovered/Not Resolved]
  - Tremor [Unknown]
  - Dizziness [Unknown]
  - Frequent bowel movements [Unknown]
  - Blood pressure increased [Unknown]
  - Pain [Unknown]
  - Abdominal pain [Unknown]
  - Somnolence [Unknown]
  - Nausea [Unknown]
  - Fluid overload [Unknown]
  - Depressed mood [Unknown]
  - Fatigue [Unknown]
  - Lacrimation increased [Unknown]
  - Balance disorder [Unknown]
  - Malaise [Unknown]

NARRATIVE: CASE EVENT DATE: 2021
